FAERS Safety Report 9462660 (Version 1)
Quarter: 2013Q3

REPORT INFORMATION
  Report Type: Spontaneous
  Country: US (occurrence: US)
  Receive Date: 20130816
  Receipt Date: 20130816
  Transmission Date: 20140515
  Serious: Yes (Life-Threatening, Hospitalization, Other)
  Sender: FDA-Public Use
  Company Number: US-ELI_LILLY_AND_COMPANY-US201308002482

PATIENT
  Sex: Female

DRUGS (2)
  1. HUMALOG LISPRO [Suspect]
     Indication: BLOOD GLUCOSE ABNORMAL
     Dosage: UNK UNK, PRN
  2. LANTUS [Concomitant]
     Indication: BLOOD GLUCOSE ABNORMAL
     Dosage: UNK, EACH EVENING

REACTIONS (4)
  - Sepsis [Unknown]
  - Cerebrovascular accident [Unknown]
  - Blood glucose increased [Unknown]
  - Infection [Unknown]
